FAERS Safety Report 17507764 (Version 1)
Quarter: 2020Q1

REPORT INFORMATION
  Report Type: Spontaneous
  Country: US (occurrence: US)
  Receive Date: 20200305
  Receipt Date: 20200305
  Transmission Date: 20200409
  Serious: Yes (Hospitalization)
  Sender: FDA-Public Use
  Company Number: US-CONCORD BIOTECH LIMITED-CBL202002-000023

PATIENT
  Age: 56 Year
  Sex: Female

DRUGS (3)
  1. MYCOPHENOLATE MOFETIL. [Suspect]
     Active Substance: MYCOPHENOLATE MOFETIL
  2. PREDNISONE. [Suspect]
     Active Substance: PREDNISONE
  3. CYCLOSPORINE. [Suspect]
     Active Substance: CYCLOSPORINE

REACTIONS (4)
  - Acute kidney injury [Recovered/Resolved]
  - Cytomegalovirus colitis [Recovered/Resolved]
  - Metabolic acidosis [Recovered/Resolved]
  - Anaemia [Recovering/Resolving]
